FAERS Safety Report 8543421-8 (Version None)
Quarter: 2012Q3

REPORT INFORMATION
  Report Type: 
  Country: None (occurrence: None)
  Receive Date: 20120727
  Receipt Date: 20120725
  Transmission Date: 20120928
  Serious: Yes (Death, Hospitalization, Other)
  Sender: FDA-Public Use
  Company Number: US-PFIZER INC-2012180008

PATIENT
  Sex: Male
  Weight: 72.5 kg

DRUGS (2)
  1. SUTENT [Suspect]
     Indication: RENAL CELL CARCINOMA
     Dosage: UNK
     Dates: start: 20120301, end: 20120101
  2. SUTENT [Suspect]
     Dosage: UNK
     Dates: start: 20120401, end: 20120710

REACTIONS (11)
  - DIARRHOEA [None]
  - DISEASE PROGRESSION [None]
  - RENAL CELL CARCINOMA [None]
  - HEPATIC CIRRHOSIS [None]
  - DYSPHAGIA [None]
  - ASTHENIA [None]
  - CONTUSION [None]
  - ABASIA [None]
  - BLISTER [None]
  - SPEECH DISORDER [None]
  - WEIGHT DECREASED [None]
